FAERS Safety Report 11811314 (Version 1)
Quarter: 2015Q4

REPORT INFORMATION
  Report Type: Report from Study
  Country: CR (occurrence: CR)
  Receive Date: 20151208
  Receipt Date: 20151208
  Transmission Date: 20160305
  Serious: Yes (Hospitalization)
  Sender: FDA-Public Use
  Company Number: PHHY2015CR159752

PATIENT
  Age: 79 Year
  Sex: Female

DRUGS (1)
  1. EXFORGE HCT [Suspect]
     Active Substance: AMLODIPINE BESYLATE\HYDROCHLOROTHIAZIDE\VALSARTAN
     Indication: PRODUCT USED FOR UNKNOWN INDICATION
     Dosage: VALSARTAN 10 MG, AMLODIPINE BESYLATE 320 MG, HYDROCHLOROTHIAZIDE 25 MG
     Route: 065

REACTIONS (3)
  - Epistaxis [Unknown]
  - Blood pressure increased [Unknown]
  - Haematemesis [Unknown]
